FAERS Safety Report 6763774-0 (Version None)
Quarter: 2010Q2

REPORT INFORMATION
  Report Type: 
  Country: None (occurrence: None)
  Receive Date: 20100610
  Receipt Date: 20100602
  Transmission Date: 20101027
  Serious: Yes (Death)
  Sender: FDA-Public Use
  Company Number: CO-ROCHE-706969

PATIENT
  Sex: Female

DRUGS (3)
  1. XELODA [Suspect]
     Indication: BREAST CANCER
     Route: 048
     Dates: start: 20091211, end: 20100511
  2. ACETAMINOPHEN [Concomitant]
     Indication: PAIN
     Dosage: FREQUENCY: PRN
     Route: 048
  3. OXYCODONE [Concomitant]
     Indication: PAIN
     Dosage: FREQUENCY: PRN
     Route: 048

REACTIONS (1)
  - MALIGNANT NEOPLASM PROGRESSION [None]
